FAERS Safety Report 14601128 (Version 1)
Quarter: 2018Q1

REPORT INFORMATION
  Report Type: Spontaneous
  Country: NO (occurrence: NO)
  Receive Date: 20180305
  Receipt Date: 20180305
  Transmission Date: 20180509
  Serious: Yes (Hospitalization, Disabling, Other)
  Sender: FDA-Public Use
  Company Number: NO-ELI_LILLY_AND_COMPANY-NO201802009217

PATIENT
  Age: 28 Year
  Sex: Female
  Weight: 52 kg

DRUGS (1)
  1. ZYPREXA [Suspect]
     Active Substance: OLANZAPINE
     Indication: HYPOMANIA
     Dosage: 30 MG, UNKNOWN
     Route: 065
     Dates: start: 20170101, end: 20170331

REACTIONS (20)
  - Menstrual disorder [Not Recovered/Not Resolved]
  - Amnesia [Not Recovered/Not Resolved]
  - Decreased interest [Not Recovered/Not Resolved]
  - Visual impairment [Not Recovered/Not Resolved]
  - Rash [Recovered/Resolved with Sequelae]
  - Decreased appetite [Not Recovered/Not Resolved]
  - Arthralgia [Recovered/Resolved with Sequelae]
  - Dysgraphia [Not Recovered/Not Resolved]
  - Weight decreased [Not Recovered/Not Resolved]
  - Alopecia [Recovered/Resolved with Sequelae]
  - Insomnia [Recovering/Resolving]
  - Speech disorder [Not Recovered/Not Resolved]
  - Apathy [Not Recovered/Not Resolved]
  - Breast enlargement [Not Recovered/Not Resolved]
  - Muscle atrophy [Recovered/Resolved with Sequelae]
  - Weight increased [Recovered/Resolved]
  - Major depression [Not Recovered/Not Resolved]
  - Overdose [Unknown]
  - Paraesthesia [Not Recovered/Not Resolved]
  - Suicidal ideation [Not Recovered/Not Resolved]
